FAERS Safety Report 4575549-1 (Version None)
Quarter: 2005Q1

REPORT INFORMATION
  Report Type: 
  Country: None (occurrence: None)
  Receive Date: 20050209
  Receipt Date: 20050128
  Transmission Date: 20050727
  Serious: Yes (Other)
  Sender: FDA-Public Use
  Company Number: PL-NOVOPROD-241932

PATIENT
  Sex: Female
  Weight: 3 kg

DRUGS (11)
  1. NOVOLOG [Suspect]
     Dosage: 13 IU, QD
     Route: 015
     Dates: start: 20030822
  2. PROTAPHANE PENFILL [Concomitant]
     Indication: DIABETES MELLITUS INSULIN-DEPENDENT
     Dosage: 24 IU, QD
     Route: 015
     Dates: start: 20030822
  3. EUTHYROX [Concomitant]
     Dosage: 125 UG, QD
     Route: 015
     Dates: start: 20031001
  4. METHYLDOPA [Concomitant]
     Route: 015
  5. AMOXICLAV [Concomitant]
     Route: 015
  6. NO-SPA [Concomitant]
     Route: 015
  7. FUROSEMID ^DAK^ [Concomitant]
     Route: 015
  8. RELANIUM [Concomitant]
     Route: 015
  9. LAKCID [Concomitant]
     Route: 015
  10. TRAMAL [Concomitant]
     Dosage: UNK, UNK
     Route: 015
  11. FRAXIPARIN [Concomitant]

REACTIONS (2)
  - DRUG EXPOSURE DURING PREGNANCY [None]
  - HYPOGLYCAEMIA NEONATAL [None]
